FAERS Safety Report 14311076 (Version 1)
Quarter: 2017Q4

REPORT INFORMATION
  Report Type: Spontaneous
  Country: US (occurrence: US)
  Receive Date: 20171221
  Receipt Date: 20171221
  Transmission Date: 20180321
  Serious: Yes (Death, Other)
  Sender: FDA-Public Use
  Company Number: US-SA-2017SA126295

PATIENT
  Sex: Female

DRUGS (1)
  1. PLAVIX [Suspect]
     Active Substance: CLOPIDOGREL BISULFATE
     Indication: STENT PLACEMENT
     Route: 048
     Dates: start: 20061009, end: 20130319

REACTIONS (14)
  - Aphasia [Unknown]
  - Feeding disorder [Unknown]
  - Brain injury [Fatal]
  - Dysphagia [Unknown]
  - Haemorrhage intracranial [Fatal]
  - Cerebral haemorrhage [Fatal]
  - Ischaemic stroke [Fatal]
  - Hypoxic-ischaemic encephalopathy [Fatal]
  - Gait inability [Unknown]
  - Akinesia [Unknown]
  - Communication disorder [Unknown]
  - Haemorrhage [Unknown]
  - Paraplegia [Unknown]
  - Pain [Unknown]
